FAERS Safety Report 7248701-4 (Version None)
Quarter: 2011Q1

REPORT INFORMATION
  Report Type: 
  Country: None (occurrence: None)
  Receive Date: 20110119
  Receipt Date: 20110119
  Transmission Date: 20110831
  Serious: Yes (Life-Threatening, Other)
  Sender: FDA-Public Use
  Company Number: None

PATIENT
  Sex: Male
  Weight: 92.0802 kg

DRUGS (1)
  1. TRIAD ALCOHOL SWABS ISOPROPYL ALCOHOL, 70% V/V H + P MUKWONAGO, WI [Suspect]
     Indication: ANTI-INFECTIVE THERAPY
     Dates: start: 20101217, end: 20101217

REACTIONS (3)
  - PRODUCT IDENTIFICATION NUMBER ISSUE [None]
  - APPLICATION SITE CELLULITIS [None]
  - PRODUCT QUALITY ISSUE [None]
